FAERS Safety Report 16002544 (Version 3)
Quarter: 2020Q1

REPORT INFORMATION
  Report Type: Spontaneous
  Country: US (occurrence: US)
  Receive Date: 20190225
  Receipt Date: 20200106
  Transmission Date: 20200409
  Serious: No
  Sender: FDA-Public Use
  Company Number: US-SA-2019SA046565

PATIENT
  Age: 53 Year
  Sex: Male

DRUGS (12)
  1. DUPIXENT [Suspect]
     Active Substance: DUPILUMAB
     Indication: PSORIASIS
  2. METFORMIN [Concomitant]
     Active Substance: METFORMIN HYDROCHLORIDE
  3. MUPIROCIN. [Concomitant]
     Active Substance: MUPIROCIN
  4. DOXYCYCLIN [DOXYCYCLINE HYDROCHLORIDE] [Concomitant]
  5. CEPHALEXIN [CEFALEXIN SODIUM] [Concomitant]
     Active Substance: CEPHALEXIN
  6. TRIAMCINOLON [TRIAMCINOLONE] [Concomitant]
  7. ECONAZOLE. [Concomitant]
     Active Substance: ECONAZOLE NITRATE
  8. LISINOPRIL. [Concomitant]
     Active Substance: LISINOPRIL
  9. DUPIXENT [Suspect]
     Active Substance: DUPILUMAB
     Indication: DERMATITIS ATOPIC
     Dosage: 300 MG, QOW
     Route: 058
     Dates: start: 20181016
  10. ONE TOUCH [Concomitant]
     Active Substance: DEXTROSE
  11. CLOBETASOL [Concomitant]
     Active Substance: CLOBETASOL
  12. LOVASTATIN. [Concomitant]
     Active Substance: LOVASTATIN

REACTIONS (5)
  - Product use in unapproved indication [Unknown]
  - Seasonal allergy [Not Recovered/Not Resolved]
  - Dry eye [Not Recovered/Not Resolved]
  - Acne [Not Recovered/Not Resolved]
  - Condition aggravated [Not Recovered/Not Resolved]

NARRATIVE: CASE EVENT DATE: 20181016
